FAERS Safety Report 9577631 (Version 3)
Quarter: 2014Q1

REPORT INFORMATION
  Report Type: Spontaneous
  Country: GB (occurrence: GB)
  Receive Date: 20131001
  Receipt Date: 20140101
  Transmission Date: 20141002
  Serious: Yes (Other)
  Sender: FDA-Public Use
  Company Number: GB-US-EMD SERONO, INC.-7239831

PATIENT
  Age: 36 Year
  Sex: Female

DRUGS (3)
  1. REBIF [Suspect]
     Indication: RELAPSING-REMITTING MULTIPLE SCLEROSIS
     Route: 058
     Dates: start: 20130626, end: 20130912
  2. REBIF [Suspect]
     Route: 058
     Dates: start: 20120926, end: 20130618
  3. VITAMIN D                          /00107901/ [Concomitant]
     Indication: PRODUCT USED FOR UNKNOWN INDICATION

REACTIONS (7)
  - Self injurious behaviour [Recovering/Resolving]
  - Depression [Recovering/Resolving]
  - Personality change [Recovering/Resolving]
  - Haemoglobin decreased [Recovered/Resolved]
  - Adverse reaction [Unknown]
  - Platelet count decreased [Recovered/Resolved]
  - Aspartate aminotransferase increased [Recovered/Resolved]
